FAERS Safety Report 9424848 (Version 1)
Quarter: 2013Q3

REPORT INFORMATION
  Report Type: Spontaneous
  Country: US (occurrence: US)
  Receive Date: 20130729
  Receipt Date: 20130729
  Transmission Date: 20140515
  Serious: No
  Sender: FDA-Public Use
  Company Number: US-PFIZER INC-2013216157

PATIENT
  Age: 67 Year
  Sex: Male
  Weight: 106.58 kg

DRUGS (3)
  1. VIAGRA [Suspect]
     Indication: ERECTILE DYSFUNCTION
     Dosage: 100 MG, AS NEEDED
     Route: 048
     Dates: start: 20130720, end: 20130720
  2. SYNTHROID [Concomitant]
     Indication: HYPOTHYROIDISM
     Dosage: 125 UG, 1X/DAY
  3. AMLODIPINE [Concomitant]
     Indication: HYPERTENSION
     Dosage: 2.5 MG, UNK

REACTIONS (1)
  - Drug effect decreased [Unknown]
